FAERS Safety Report 4832029-3 (Version None)
Quarter: 2005Q4

REPORT INFORMATION
  Report Type: 
  Country: None (occurrence: None)
  Receive Date: 20051116
  Receipt Date: 20051102
  Transmission Date: 20060501
  Serious: Yes (Other)
  Sender: FDA-Public Use
  Company Number: CIP05002574

PATIENT
  Age: 60 Year
  Sex: Female

DRUGS (4)
  1. FURADANTIN [Suspect]
     Indication: URINARY TRACT INFECTION
     Dosage: SEE IMAGE, ORAL
     Route: 048
     Dates: start: 20051022, end: 20051025
  2. FURADANTIN [Suspect]
     Indication: URINARY TRACT INFECTION
     Dosage: SEE IMAGE, ORAL
     Route: 048
     Dates: start: 20051025, end: 20051030
  3. INFLUENZA VACCINE (INFLUENZA VACCINE) SOLUTION [Suspect]
     Indication: INFLUENZA IMMUNISATION
     Dosage: 2 DF THREE TIMES DAILY, ORAL
     Route: 048
     Dates: start: 20051022, end: 20051025
  4. INFLUENZA VACCINE (INFLUENZA VACCINE) SOLUTION [Suspect]
     Indication: INFLUENZA IMMUNISATION
     Dosage: 1DF ONCE ONLY, INTRAMUSCULAR
     Route: 030
     Dates: start: 20051029, end: 20051029

REACTIONS (3)
  - COLITIS [None]
  - LARGE INTESTINAL HAEMORRHAGE [None]
  - RECTAL DISCHARGE [None]
